FAERS Safety Report 7386143-1 (Version None)
Quarter: 2011Q1

REPORT INFORMATION
  Report Type: 
  Country: None (occurrence: None)
  Receive Date: 20110331
  Receipt Date: 20110306
  Transmission Date: 20110831
  Serious: No
  Sender: FDA-Public Use
  Company Number: US-B.I. PHARMACEUTICALS,INC./RIDGEFIELD-2011-BP-08649BP

PATIENT
  Sex: Male

DRUGS (3)
  1. PRADAXA [Suspect]
     Indication: ATRIAL FIBRILLATION
     Dosage: 300 MG
     Route: 048
     Dates: start: 20110303
  2. CARVEDILOL [Concomitant]
     Indication: ATRIAL FIBRILLATION
  3. ZOCOR [Concomitant]
     Indication: BLOOD CHOLESTEROL INCREASED

REACTIONS (6)
  - ABDOMINAL PAIN LOWER [None]
  - HAEMATURIA [None]
  - ABDOMINAL PAIN [None]
  - DYSURIA [None]
  - MUSCLE SPASMS [None]
  - HAEMATEMESIS [None]
